FAERS Safety Report 20165650 (Version 1)
Quarter: 2021Q4

REPORT INFORMATION
  Report Type: Spontaneous
  Country: CN (occurrence: CN)
  Receive Date: 20211209
  Receipt Date: 20211209
  Transmission Date: 20220304
  Serious: Yes (Other)
  Sender: FDA-Public Use
  Company Number: CN-ORGANON-O2112CHN000365

PATIENT

DRUGS (1)
  1. DIPROSPAN [Suspect]
     Active Substance: BETAMETHASONE DIPROPIONATE\BETAMETHASONE SODIUM PHOSPHATE
     Indication: Pain
     Dosage: UNK
     Dates: start: 20211130

REACTIONS (1)
  - Spinal cord injury [Unknown]

NARRATIVE: CASE EVENT DATE: 20211130
